FAERS Safety Report 4978423-1 (Version None)
Quarter: 2006Q1

REPORT INFORMATION
  Report Type: 
  Country: None (occurrence: None)
  Receive Date: 20060228
  Receipt Date: 20051026
  Transmission Date: 20060701
  Serious: No
  Sender: FDA-Public Use
  Company Number: 05P-163-0316088-00

PATIENT
  Sex: Female

DRUGS (2)
  1. DILAUDID [Suspect]
     Dosage: 1 MILLIGRAM/MILLILITERS, 2 MG EVERY 10 MIN WITH 2 MG CONTINUOUS, INTRAVENOUS
     Route: 042
  2. PETHIDINE HYDROCHLORIDE [Suspect]
     Dosage: LESS THAN 1000 MG DAILY, PER ORAL
     Route: 048

REACTIONS (3)
  - AMNESIA [None]
  - MEDICATION ERROR [None]
  - UNRESPONSIVE TO VERBAL STIMULI [None]
